FAERS Safety Report 8832395 (Version 1)
Quarter: 2012Q4

REPORT INFORMATION
  Report Type: 
  Country: US (occurrence: US)
  Receive Date: 20121009
  Receipt Date: 20121009
  Transmission Date: 20130627
  Serious: No
  Sender: FDA-Public Use
  Company Number: US-ASTRAZENECA-2012SE74996

PATIENT
  Age: 54 Year
  Sex: Male

DRUGS (1)
  1. MERREM [Suspect]
     Route: 048

REACTIONS (3)
  - Nerve injury [Unknown]
  - Chronic obstructive pulmonary disease [Unknown]
  - Hearing impaired [Unknown]
